FAERS Safety Report 17302760 (Version 2)
Quarter: 2020Q1

REPORT INFORMATION
  Report Type: Report from Study
  Country: JP (occurrence: JP)
  Receive Date: 20200122
  Receipt Date: 20200131
  Transmission Date: 20200409
  Serious: Yes (Hospitalization)
  Sender: FDA-Public Use
  Company Number: JP-SHIRE-JP201945493

PATIENT

DRUGS (12)
  1. PHENOBARBITAL. [Concomitant]
     Active Substance: PHENOBARBITAL
     Indication: SCHIZENCEPHALY
  2. LEVOCARNITINE. [Concomitant]
     Active Substance: LEVOCARNITINE
     Indication: SHORT-BOWEL SYNDROME
  3. TEDUGLUTIDE [Suspect]
     Active Substance: TEDUGLUTIDE
     Indication: SHORT-BOWEL SYNDROME
     Dosage: 0.6 MILLIGRAM, 1X/DAY:QD
     Route: 058
     Dates: start: 20190924, end: 20191229
  4. PHENOBARBITAL. [Concomitant]
     Active Substance: PHENOBARBITAL
     Indication: SHORT-BOWEL SYNDROME
  5. HEPARIN SODIUM. [Concomitant]
     Active Substance: HEPARIN SODIUM
     Indication: SHORT-BOWEL SYNDROME
  6. ALFACALCIDOL [Concomitant]
     Active Substance: ALFACALCIDOL
     Indication: SUPPLEMENTATION THERAPY
  7. SODIUM BICARBONATE. [Concomitant]
     Active Substance: SODIUM BICARBONATE
     Indication: SHORT-BOWEL SYNDROME
  8. FERRIC PYROPHOSPHATE [Concomitant]
     Active Substance: FERRIC PYROPHOSPHATE
     Indication: SUPPLEMENTATION THERAPY
  9. SCOPOLAMINE BUTYLBROMIDE [Concomitant]
     Active Substance: SCOPOLAMINE
     Indication: SHORT-BOWEL SYNDROME
  10. FAMOTIDINE. [Concomitant]
     Active Substance: FAMOTIDINE
     Indication: SHORT-BOWEL SYNDROME
  11. ELNEOPA NF NO.1 [Concomitant]
     Indication: SHORT-BOWEL SYNDROME
  12. SOLDEM 3A [Concomitant]
     Active Substance: CARBOHYDRATES\POTASSIUM CHLORIDE\SODIUM CHLORIDE\SODIUM LACTATE
     Indication: SHORT-BOWEL SYNDROME

REACTIONS (2)
  - Epilepsy [Not Recovered/Not Resolved]
  - Pancreatitis acute [Recovering/Resolving]

NARRATIVE: CASE EVENT DATE: 20191220
